FAERS Safety Report 5873135-4 (Version None)
Quarter: 2008Q3

REPORT INFORMATION
  Report Type: 
  Country: None (occurrence: None)
  Receive Date: 20080908
  Receipt Date: 20080828
  Transmission Date: 20090109
  Serious: Yes (Hospitalization, Other)
  Sender: FDA-Public Use
  Company Number: US-JNJFOC-20080900094

PATIENT
  Sex: Female
  Weight: 86.18 kg

DRUGS (12)
  1. DURAGESIC-100 [Suspect]
     Indication: RESTLESS LEGS SYNDROME
     Route: 062
  2. DURAGESIC-100 [Suspect]
     Indication: PANCREATITIS
     Route: 062
  3. WELLBUTRIN [Suspect]
     Indication: NERVOUSNESS
     Route: 048
  4. DILAUDID [Concomitant]
     Indication: BREAKTHROUGH PAIN
     Dosage: EVERY 1-2 HOURS AS NEEDED
     Route: 042
  5. DILAUDID [Concomitant]
     Dosage: EVERY 1-2 HOURS AS NEEDED
     Route: 030
  6. DILAUDID [Concomitant]
     Dosage: EVERY 1-2 HOURS AS NEEDED
     Route: 048
  7. REGLAN [Concomitant]
     Route: 048
  8. ACIPHEX [Concomitant]
     Route: 048
  9. COUMADIN [Concomitant]
     Indication: THROMBOSIS PROPHYLAXIS
     Route: 048
  10. LIPASE [Concomitant]
     Indication: PANCREATITIS
  11. PHENERGAN HCL [Concomitant]
     Indication: PANCREATITIS
  12. REQUIP [Concomitant]
     Indication: RESTLESS LEGS SYNDROME

REACTIONS (11)
  - BREAKTHROUGH PAIN [None]
  - DEVICE RELATED INFECTION [None]
  - INADEQUATE ANALGESIA [None]
  - INAPPROPRIATE SCHEDULE OF DRUG ADMINISTRATION [None]
  - INCORRECT DRUG ADMINISTRATION DURATION [None]
  - PALPITATIONS [None]
  - PANIC ATTACK [None]
  - SEPSIS [None]
  - STAPHYLOCOCCAL INFECTION [None]
  - WEIGHT DECREASED [None]
  - WITHDRAWAL SYNDROME [None]
